FAERS Safety Report 9521858 (Version 1)
Quarter: 2013Q3

REPORT INFORMATION
  Report Type: Spontaneous
  Country: US (occurrence: None)
  Receive Date: 20130911
  Receipt Date: 20130911
  Transmission Date: 20140515
  Serious: Yes (Other)
  Sender: FDA-Public Use
  Company Number: SYM-2013-10409

PATIENT
  Sex: 0

DRUGS (5)
  1. FLUOROURACIL [Suspect]
     Indication: ADENOCARCINOMA GASTRIC
     Dosage: EVERY OTHER WEEK
  2. CISPLATIN [Suspect]
     Indication: ADENOCARCINOMA GASTRIC
     Dosage: EVERY OTHER WEEK
  3. DOCETAXEL [Suspect]
     Indication: ADENOCARCINOMA GASTRIC
     Dosage: MG
  4. LEUCOVORIN [Suspect]
     Indication: ADENOCARCINOMA GASTRIC
     Dosage: EVERY OTHER WEEK
  5. GRANULOCYTE COLONY STIMULATING FACTOR(GRANULOCYTE COLONY STIMULATING FACTOR) (GRANULOCYTE COLONY STIMULATING FACTOR) [Concomitant]

REACTIONS (2)
  - Infection [None]
  - Toxicity to various agents [None]
